FAERS Safety Report 9470401 (Version 3)
Quarter: 2014Q1

REPORT INFORMATION
  Report Type: Report from Study
  Country: US (occurrence: US)
  Receive Date: 20130822
  Receipt Date: 20140220
  Transmission Date: 20141002
  Serious: Yes (Other)
  Sender: FDA-Public Use
  Company Number: PHHY2013US035337

PATIENT
  Age: 44 Year
  Sex: Female
  Weight: 101.13 kg

DRUGS (1)
  1. GILENYA [Suspect]
     Indication: MULTIPLE SCLEROSIS
     Dosage: 0.5 MG, UNK
     Route: 048
     Dates: start: 20121120, end: 20130228

REACTIONS (2)
  - Uterine leiomyoma [Not Recovered/Not Resolved]
  - Depression [Recovered/Resolved]
